FAERS Safety Report 6240011-7 (Version None)
Quarter: 2009Q2

REPORT INFORMATION
  Report Type: 
  Country: None (occurrence: None)
  Receive Date: 20090623
  Receipt Date: 20090612
  Transmission Date: 20091009
  Serious: Yes (Other)
  Sender: FDA-Public Use
  Company Number: PHHY2009JP24340

PATIENT
  Age: 6 Year
  Sex: Male

DRUGS (1)
  1. TEGRETOL [Suspect]
     Indication: FEBRILE CONVULSION
     Dosage: 10 MG/KG DAILY
     Route: 048

REACTIONS (5)
  - DYSCALCULIA [None]
  - ELECTROENCEPHALOGRAM ABNORMAL [None]
  - EMOTIONAL DISORDER OF CHILDHOOD [None]
  - LISTLESS [None]
  - READING DISORDER [None]
